FAERS Safety Report 12623320 (Version 1)
Quarter: 2016Q3

REPORT INFORMATION
  Report Type: Spontaneous
  Country: FR (occurrence: FR)
  Receive Date: 20160804
  Receipt Date: 20160804
  Transmission Date: 20161109
  Serious: Yes (Hospitalization)
  Sender: FDA-Public Use
  Company Number: FR-SA-2016SA137827

PATIENT
  Age: 60 Year
  Sex: Female

DRUGS (15)
  1. AVLOCARDYL [Concomitant]
     Active Substance: PROPRANOLOL HYDROCHLORIDE
  2. MODOPAR [Concomitant]
     Active Substance: BENSERAZIDE HYDROCHLORIDE\LEVODOPA
  3. SIFROL [Concomitant]
     Active Substance: PRAMIPEXOLE
  4. AMARYL [Concomitant]
     Active Substance: GLIMEPIRIDE
  5. LEVEMIR [Concomitant]
     Active Substance: INSULIN DETEMIR
     Dosage: DOSE:36 UNIT(S)
     Route: 065
  6. XELEVIA [Concomitant]
     Active Substance: SITAGLIPTIN PHOSPHATE
  7. TOUJEO [Suspect]
     Active Substance: INSULIN GLARGINE
     Indication: TYPE 2 DIABETES MELLITUS
     Route: 058
     Dates: start: 20160711, end: 20160713
  8. SOLOSTAR [Concomitant]
     Active Substance: DEVICE
     Indication: TYPE 2 DIABETES MELLITUS
     Dates: start: 20160711, end: 20160713
  9. JANUVIA [Concomitant]
     Active Substance: SITAGLIPTIN PHOSPHATE
  10. STAGID [Concomitant]
     Active Substance: METFORMIN PAMOATE
  11. LEVEMIR [Concomitant]
     Active Substance: INSULIN DETEMIR
  12. DIAMICRON [Concomitant]
     Active Substance: GLICLAZIDE
     Dosage: MODIFIED RELEASE DIVISIBLE TABLETS
     Route: 065
  13. PARKINANE [Concomitant]
     Active Substance: TRIHEXYPHENIDYL HYDROCHLORIDE
  14. TAHOR [Concomitant]
     Active Substance: ATORVASTATIN CALCIUM
     Route: 065
  15. JANUMET [Suspect]
     Active Substance: METFORMIN HYDROCHLORIDE\SITAGLIPTIN PHOSPHATE
     Indication: TYPE 2 DIABETES MELLITUS
     Route: 048
     Dates: start: 20160711

REACTIONS (4)
  - Disturbance in attention [Recovered/Resolved]
  - Confusional state [Recovered/Resolved]
  - Somnolence [Recovered/Resolved]
  - Disorientation [Recovered/Resolved]

NARRATIVE: CASE EVENT DATE: 20160713
